FAERS Safety Report 4589060-5 (Version None)
Quarter: 2005Q1

REPORT INFORMATION
  Report Type: 
  Country: None (occurrence: None)
  Receive Date: 20050222
  Receipt Date: 20041013
  Transmission Date: 20050727
  Serious: Yes (Hospitalization, Other)
  Sender: FDA-Public Use
  Company Number: CA-MERCK-0410CAN00273

PATIENT
  Age: 73 Year
  Sex: Female

DRUGS (5)
  1. VIOXX [Suspect]
     Indication: BACK PAIN
     Route: 048
     Dates: start: 20010101, end: 20040401
  2. VIOXX [Suspect]
     Route: 048
     Dates: start: 20040401
  3. VIOXX [Suspect]
     Indication: OSTEOARTHRITIS
     Route: 048
     Dates: start: 20010101, end: 20040401
  4. VIOXX [Suspect]
     Route: 048
     Dates: start: 20040401
  5. [THERAPY UNSPECIFIED] [Concomitant]
     Indication: HYPERTENSION
     Route: 065

REACTIONS (2)
  - COLITIS ISCHAEMIC [None]
  - HYPERTENSIVE CRISIS [None]
